FAERS Safety Report 8430529-0 (Version None)
Quarter: 2012Q2

REPORT INFORMATION
  Report Type: 
  Country: None (occurrence: None)
  Receive Date: 20120612
  Receipt Date: 20120605
  Transmission Date: 20120825
  Serious: Yes (Hospitalization)
  Sender: FDA-Public Use
  Company Number: US-VIIV HEALTHCARE LIMITED-A0977049A

PATIENT
  Age: 43 Year
  Sex: Male
  Weight: 65.9 kg

DRUGS (3)
  1. EDURANT [Suspect]
     Indication: PRODUCT USED FOR UNKNOWN INDICATION
     Dosage: 25MG PER DAY
     Dates: start: 20120423, end: 20120428
  2. LISINOPRIL [Concomitant]
  3. EPZICOM [Suspect]
     Indication: PRODUCT USED FOR UNKNOWN INDICATION
     Dosage: 1TAB PER DAY
     Route: 048
     Dates: start: 20120423, end: 20120428

REACTIONS (8)
  - GLOMERULAR FILTRATION RATE DECREASED [None]
  - BLOOD TRIGLYCERIDES INCREASED [None]
  - BLOOD CREATININE INCREASED [None]
  - LOSS OF CONSCIOUSNESS [None]
  - NAUSEA [None]
  - BLOOD LACTATE DEHYDROGENASE INCREASED [None]
  - RENAL FAILURE ACUTE [None]
  - CD4 LYMPHOCYTES DECREASED [None]
